FAERS Safety Report 4651613-3 (Version None)
Quarter: 2005Q2

REPORT INFORMATION
  Report Type: 
  Country: None (occurrence: None)
  Receive Date: 20050404
  Receipt Date: 20050104
  Transmission Date: 20051028
  Serious: No
  Sender: FDA-Public Use
  Company Number: USA041183448

PATIENT
  Age: 58 Year
  Sex: Female

DRUGS (3)
  1. CYMBALTA [Suspect]
     Indication: ANXIETY
     Dosage: 20 MG DAY
     Dates: start: 20041019
  2. SYNTHROID [Concomitant]
  3. ATENOLOL [Concomitant]

REACTIONS (4)
  - BLOOD PRESSURE AMBULATORY DECREASED [None]
  - BLOOD PRESSURE INCREASED [None]
  - FEELING ABNORMAL [None]
  - NASOPHARYNGITIS [None]
